FAERS Safety Report 7990573-4 (Version None)
Quarter: 2011Q4

REPORT INFORMATION
  Report Type: 
  Country: None (occurrence: None)
  Receive Date: 20111219
  Receipt Date: 20110406
  Transmission Date: 20120403
  Serious: No
  Sender: FDA-Public Use
  Company Number: US-ASTRAZENECA-2011SE19443

PATIENT
  Age: 42 Year
  Sex: Male

DRUGS (3)
  1. IBUPROFEN [Concomitant]
  2. KEFLEX [Concomitant]
  3. CRESTOR [Suspect]
     Route: 048

REACTIONS (2)
  - GLOMERULAR FILTRATION RATE DECREASED [None]
  - HYPERCALCAEMIA [None]
